FAERS Safety Report 10959869 (Version 1)
Quarter: 2015Q1

REPORT INFORMATION
  Report Type: Spontaneous
  Country: US (occurrence: None)
  Receive Date: 20150326
  Receipt Date: 20150326
  Transmission Date: 20150721
  Serious: Yes (Hospitalization)
  Sender: FDA-Public Use
  Company Number: None

PATIENT
  Age: 63 Year
  Sex: Male
  Weight: 103.87 kg

DRUGS (1)
  1. TAXOL [Suspect]
     Active Substance: PACLITAXEL
     Dates: start: 20150302

REACTIONS (5)
  - Bronchitis [None]
  - Pain [None]
  - Cardiac arrest [None]
  - Anaphylactic reaction [None]
  - Dyspepsia [None]

NARRATIVE: CASE EVENT DATE: 20150302
